FAERS Safety Report 9735129 (Version 1)
Quarter: 2013Q4

REPORT INFORMATION
  Report Type: Spontaneous
  Country: US (occurrence: None)
  Receive Date: 20131204
  Receipt Date: 20131204
  Transmission Date: 20140711
  Serious: Yes (Death)
  Sender: FDA-Public Use
  Company Number: SYM-2013-13612

PATIENT
  Age: 58 Year
  Sex: Female

DRUGS (1)
  1. XENAZINE (25 MILLIGRAM, TABLET) (TETRABENAZINE, TETRABENAZINE) [Suspect]

REACTIONS (1)
  - Death [None]
